FAERS Safety Report 14197608 (Version 3)
Quarter: 2017Q4

REPORT INFORMATION
  Report Type: Spontaneous
  Country: DE (occurrence: DE)
  Receive Date: 20171116
  Receipt Date: 20171208
  Transmission Date: 20180321
  Serious: Yes (Death, Other)
  Sender: FDA-Public Use
  Company Number: DE-B.I. PHARMACEUTICALS,INC./RIDGEFIELD-2017-BI-060820

PATIENT
  Age: 48 Year
  Sex: Female

DRUGS (1)
  1. GILOTRIF [Suspect]
     Active Substance: AFATINIB
     Indication: ADENOCARCINOMA
     Route: 065
     Dates: start: 201109

REACTIONS (4)
  - Paraplegia [Unknown]
  - Death [Fatal]
  - Spinal cord compression [Unknown]
  - Metastases to spine [Unknown]

NARRATIVE: CASE EVENT DATE: 201402
